FAERS Safety Report 9332069 (Version 1)
Quarter: 2013Q2

REPORT INFORMATION
  Report Type: Spontaneous
  Country: US (occurrence: US)
  Receive Date: 20130605
  Receipt Date: 20130605
  Transmission Date: 20140414
  Serious: No
  Sender: FDA-Public Use
  Company Number: US-ASTRAZENECA-2013SE36586

PATIENT
  Age: 66 Year
  Sex: Female
  Weight: 46.3 kg

DRUGS (4)
  1. FASLODEX [Suspect]
     Indication: METASTASES TO BONE
     Dosage: IN DIVIDED IM INJECTIONS
     Route: 030
     Dates: start: 20130508, end: 20130508
  2. FASLODEX [Suspect]
     Indication: METASTASES TO BONE
     Dosage: IN DIVIDED IM INJECTIONS
     Route: 030
     Dates: start: 20130521, end: 20130521
  3. MORPHINE [Suspect]
  4. XGEVA [Concomitant]
     Indication: BONE DISORDER
     Dosage: 120 MG, EVERY 3-4 MONTH INTERVALS
     Route: 050
     Dates: start: 20130508

REACTIONS (10)
  - Pain [Not Recovered/Not Resolved]
  - Arthralgia [Not Recovered/Not Resolved]
  - Myalgia [Not Recovered/Not Resolved]
  - Bone pain [Not Recovered/Not Resolved]
  - Oedema peripheral [Not Recovered/Not Resolved]
  - Skin discolouration [Not Recovered/Not Resolved]
  - Pain in extremity [Not Recovered/Not Resolved]
  - Nausea [Not Recovered/Not Resolved]
  - Injection site pain [Unknown]
  - Wrong technique in drug usage process [Unknown]
